FAERS Safety Report 7154479-5 (Version None)
Quarter: 2010Q4

REPORT INFORMATION
  Report Type: 
  Country: None (occurrence: None)
  Receive Date: 20101213
  Receipt Date: 20101201
  Transmission Date: 20110411
  Serious: Yes (Disabling)
  Sender: FDA-Public Use
  Company Number: US-ELI_LILLY_AND_COMPANY-US201005001263

PATIENT
  Sex: Male

DRUGS (10)
  1. FORTEO [Suspect]
     Indication: OSTEOPOROSIS
     Dosage: 20 UG, DAILY (1/D)
     Dates: start: 20090505, end: 20100701
  2. VENLAFAXINE [Concomitant]
     Dosage: 150 MG, UNKNOWN
  3. LISINOPRIL [Concomitant]
     Dosage: 20 MG, UNKNOWN
  4. JANUVIA [Concomitant]
     Dosage: 100 MG, UNKNOWN
  5. OMEPRAZOLE [Concomitant]
     Dosage: 20 MG, UNKNOWN
  6. LYRICA [Concomitant]
     Dosage: 150 MG, UNKNOWN
  7. MENTAX [Concomitant]
     Dosage: 25 MG, UNKNOWN
  8. GLUCOSAMINE [Concomitant]
  9. MULTI-VITAMIN [Concomitant]
  10. DETROL LA [Concomitant]

REACTIONS (10)
  - ABASIA [None]
  - ARTHRALGIA [None]
  - BALANCE DISORDER [None]
  - BONE PAIN [None]
  - FOOT DEFORMITY [None]
  - NEUROPATHIC ARTHROPATHY [None]
  - OEDEMA PERIPHERAL [None]
  - PAIN [None]
  - PAIN IN EXTREMITY [None]
  - WEIGHT BEARING DIFFICULTY [None]
